FAERS Safety Report 7249153-0 (Version None)
Quarter: 2011Q1

REPORT INFORMATION
  Report Type: 
  Country: None (occurrence: None)
  Receive Date: 20110128
  Receipt Date: 20110113
  Transmission Date: 20110831
  Serious: No
  Sender: FDA-Public Use
  Company Number: US-ASTRAZENECA-2009UW20359

PATIENT
  Age: 48 Year
  Sex: Female
  Weight: 65.8 kg

DRUGS (21)
  1. WELLBUTRIN SR [Concomitant]
     Dosage: 150 MG TWO TABLETS AM
     Dates: start: 20040727
  2. DEPAKOTE [Concomitant]
     Dosage: 250 MG-500 MG
     Dates: start: 20030904
  3. SEROQUEL [Suspect]
     Indication: SLEEP DISORDER
     Dosage: 100-300 MG
     Route: 048
     Dates: start: 20030101, end: 20070101
  4. TOPAMAX [Concomitant]
     Dosage: 25MG-100MG
     Dates: start: 20040316
  5. SEROQUEL [Suspect]
     Dosage: 100 MG 1-2 HS
     Route: 048
     Dates: start: 20030818
  6. ABILIFY [Concomitant]
     Dosage: 20-30MG
     Dates: start: 20070427
  7. RISPERDAL [Concomitant]
     Dosage: 2MG-3MG
     Dates: start: 20030818
  8. TOPAMAX [Concomitant]
  9. TOPAMAX [Concomitant]
     Dosage: 25MG-100MG
     Dates: start: 20050510
  10. LEXAPRO [Concomitant]
     Dates: start: 20030818
  11. TRAZODONE [Concomitant]
     Dates: start: 20070427
  12. LEXAPRO [Concomitant]
     Dosage: 10 MG-20MG
     Dates: start: 20030825
  13. SEROQUEL [Suspect]
     Dosage: 100 MG-300MG
     Route: 048
     Dates: start: 20030825
  14. INVEGA [Concomitant]
  15. BUPROPION SR [Concomitant]
     Dates: start: 20050618
  16. ABILIFY [Concomitant]
     Dates: start: 20050408
  17. RISPERDAL [Concomitant]
     Dosage: 2MG-3MG
     Dates: start: 20030916
  18. WELLBUTRIN SR [Concomitant]
     Dates: start: 20050510
  19. DEPAKOTE [Concomitant]
     Dosage: 250MG-750MG
     Dates: start: 20030818
  20. LEXAPRO [Concomitant]
  21. CLOZEPAM [Concomitant]

REACTIONS (4)
  - BLOOD GLUCOSE ABNORMAL [None]
  - SPLENOMEGALY [None]
  - TYPE 2 DIABETES MELLITUS [None]
  - GASTROINTESTINAL DISORDER [None]
